FAERS Safety Report 9392337 (Version 1)
Quarter: 2013Q3

REPORT INFORMATION
  Report Type: Spontaneous
  Country: SE (occurrence: SE)
  Receive Date: 20130710
  Receipt Date: 20130710
  Transmission Date: 20140515
  Serious: Yes (Other)
  Sender: FDA-Public Use
  Company Number: SE-AMGEN-SWESP2013047878

PATIENT
  Age: 48 Year
  Sex: Male

DRUGS (2)
  1. ENBREL [Suspect]
     Indication: RHEUMATIC DISORDER
     Dosage: 50 MG, UNK
     Route: 065
  2. PREDNISOLON                        /00016201/ [Concomitant]
     Dosage: 7.5 MG, DAILY

REACTIONS (1)
  - Atrial fibrillation [Unknown]
